FAERS Safety Report 4630105-1 (Version None)
Quarter: 2005Q2

REPORT INFORMATION
  Report Type: 
  Country: None (occurrence: None)
  Receive Date: 20050408
  Receipt Date: 20041222
  Transmission Date: 20051028
  Serious: Yes (Congenital Anomaly)
  Sender: FDA-Public Use
  Company Number: CA-GLAXOSMITHKLINE-A0539536A

PATIENT
  Age: 41 Year
  Sex: Female
  Weight: 64 kg

DRUGS (5)
  1. LEXIVA [Suspect]
     Indication: HIV INFECTION
     Dosage: 700MG TWICE PER DAY
     Route: 048
     Dates: start: 20041026
  2. EPZICOM [Suspect]
     Indication: HIV INFECTION
     Dosage: 1TAB PER DAY
     Route: 048
     Dates: start: 20041026
  3. RITONAVIR [Suspect]
     Indication: HIV INFECTION
     Dosage: 100MG TWICE PER DAY
     Route: 048
     Dates: start: 20041026
  4. SEPTRA [Concomitant]
     Indication: INFECTION PROPHYLAXIS
     Route: 048
     Dates: start: 20040512
  5. ZITHROMAX [Concomitant]
     Indication: TUBERCULOSIS PROPHYLAXIS
     Dosage: 1200MG WEEKLY
     Route: 048
     Dates: start: 20040512

REACTIONS (8)
  - BRAIN NEOPLASM [None]
  - CEREBRAL VENTRICLE DILATATION [None]
  - CONGENITAL CHOROID PLEXUS CYST [None]
  - DRUG EXPOSURE DURING PREGNANCY [None]
  - DYSPLASIA [None]
  - FOETAL MALFORMATION [None]
  - SEPTUM PELLUCIDUM AGENESIS [None]
  - ULTRASOUND SCAN ABNORMAL [None]
